FAERS Safety Report 8581270 (Version 3)
Quarter: 2012Q4

REPORT INFORMATION
  Report Type: 
  Country: JP (occurrence: JP)
  Receive Date: 20120525
  Receipt Date: 20120904
  Transmission Date: 20130627
  Serious: Yes (Other)
  Sender: FDA-Public Use
  Company Number: JP-JNJFOC-20120516792

PATIENT
  Age: 8 None
  Sex: Female

DRUGS (3)
  1. TRAMCET [Suspect]
     Indication: PAIN
     Dosage: 1 per 1 day
     Route: 048
     Dates: end: 20120720
  2. LOXONIN [Suspect]
     Indication: BACK PAIN
     Dosage: 1 per 1 day
     Route: 048
  3. LYRICA [Concomitant]
     Indication: BACK PAIN
     Dosage: 1 per 1 day
     Route: 048

REACTIONS (3)
  - Iron deficiency anaemia [Recovered/Resolved]
  - Gastrointestinal haemorrhage [Recovered/Resolved]
  - Constipation [Recovered/Resolved]
